FAERS Safety Report 9391576 (Version 1)
Quarter: 2013Q3

REPORT INFORMATION
  Report Type: Spontaneous
  Country: US (occurrence: None)
  Receive Date: 20130705
  Receipt Date: 20130705
  Transmission Date: 20140515
  Serious: Yes (Hospitalization)
  Sender: FDA-Public Use
  Company Number: US-012164

PATIENT
  Age: 69 Year
  Sex: Male
  Weight: 63.5 kg

DRUGS (4)
  1. DEGARELIX [Suspect]
     Indication: PROSTATE CANCER
     Route: 058
     Dates: start: 20130626, end: 20130626
  2. TAMSULOSIN [Concomitant]
  3. ASPIRIN [Concomitant]
  4. ADDITIVA MULTIVITAMIN ORANGE [Concomitant]

REACTIONS (3)
  - Abdominal pain [None]
  - Drug administered at inappropriate site [None]
  - Wrong technique in drug usage process [None]
